FAERS Safety Report 9203403 (Version 2)
Quarter: 2013Q2

REPORT INFORMATION
  Report Type: Spontaneous
  Country: GB (occurrence: None)
  Receive Date: 20130328
  Receipt Date: 20130402
  Transmission Date: 20140414
  Serious: Yes (Congenital Anomaly, Other)
  Sender: FDA-Public Use
  Company Number: AUR-APL-2013-02582

PATIENT
  Sex: Male
  Weight: 4.12 kg

DRUGS (2)
  1. LAMOTRIGINE [Suspect]
     Indication: EPILEPSY
     Route: 064
  2. LEVETIRACETAM [Suspect]
     Indication: EPILEPSY
     Route: 064

REACTIONS (2)
  - Maternal drugs affecting foetus [None]
  - Congenital genital malformation male [None]
